FAERS Safety Report 21433881 (Version 1)
Quarter: 2022Q4

REPORT INFORMATION
  Report Type: Report from Study
  Country: US (occurrence: US)
  Receive Date: 20221010
  Receipt Date: 20221010
  Transmission Date: 20230113
  Serious: Yes (Other)
  Sender: FDA-Public Use
  Company Number: US-SUN PHARMACEUTICAL INDUSTRIES LTD-2022R1-357839

PATIENT
  Age: 11 Year
  Sex: Male

DRUGS (4)
  1. DEXAMETHASONE [Suspect]
     Active Substance: DEXAMETHASONE
     Indication: Acute lymphocytic leukaemia
     Dosage: UNK (1 CYCLE)
     Route: 065
  2. VINCRISTINE [Suspect]
     Active Substance: VINCRISTINE
     Indication: Acute lymphocytic leukaemia
     Dosage: UNK (1 CYCLE)
     Route: 065
  3. CYCLOPHOSPHAMIDE [Suspect]
     Active Substance: CYCLOPHOSPHAMIDE
     Indication: Acute lymphocytic leukaemia
     Dosage: UNK (1 CYCLE)
     Route: 065
  4. VENETOCLAX [Concomitant]
     Active Substance: VENETOCLAX
     Indication: Acute lymphocytic leukaemia
     Dosage: 340 MILLIGRAM, DAILY (1 CYCLE)
     Route: 065

REACTIONS (3)
  - Myelosuppression [Unknown]
  - Hyperbilirubinaemia [Unknown]
  - Therapy non-responder [Unknown]
